FAERS Safety Report 17292694 (Version 1)
Quarter: 2020Q1

REPORT INFORMATION
  Report Type: Spontaneous
  Country: PT (occurrence: PT)
  Receive Date: 20200121
  Receipt Date: 20200121
  Transmission Date: 20200409
  Serious: Yes (Other)
  Sender: FDA-Public Use
  Company Number: PT-BAYER-2020-002422

PATIENT

DRUGS (1)
  1. ULTRAVIST [Suspect]
     Active Substance: IOPROMIDE
     Dosage: UNK, ONCE
     Dates: start: 20191228, end: 20191228

REACTIONS (4)
  - Auditory disorder [None]
  - Contrast media allergy [None]
  - Laryngeal oedema [None]
  - Visual impairment [None]

NARRATIVE: CASE EVENT DATE: 20191228
